FAERS Safety Report 24272913 (Version 6)
Quarter: 2025Q4

REPORT INFORMATION
  Report Type: Report from Study
  Country: JP (occurrence: JP)
  Receive Date: 20240902
  Receipt Date: 20251215
  Transmission Date: 20260117
  Serious: Yes (Hospitalization, Other)
  Sender: UCB
  Company Number: JP-UCBJ-CD202405292UCBPHAPROD

PATIENT
  Age: 41 Year
  Weight: 54.6 kg

DRUGS (8)
  1. FENFLURAMINE HYDROCHLORIDE [Suspect]
     Active Substance: FENFLURAMINE HYDROCHLORIDE
     Indication: Severe myoclonic epilepsy of infancy
     Dosage: 0.02 MILLIGRAM/KILOGRAM, 2X/DAY (BID)
     Route: 061
  2. FENFLURAMINE HYDROCHLORIDE [Suspect]
     Active Substance: FENFLURAMINE HYDROCHLORIDE
     Dosage: 0.01 MILLIGRAM/KILOGRAM, 2X/DAY (BID)
     Route: 061
  3. FENFLURAMINE HYDROCHLORIDE [Suspect]
     Active Substance: FENFLURAMINE HYDROCHLORIDE
     Dosage: THERAPY RESUMED
  4. TOPIRAMATE [Concomitant]
     Active Substance: TOPIRAMATE
     Indication: Severe myoclonic epilepsy of infancy
     Dosage: 250 MILLIGRAM, ONCE DAILY (QD)
     Route: 061
  5. LEVETIRACETAM [Concomitant]
     Active Substance: LEVETIRACETAM
     Indication: Severe myoclonic epilepsy of infancy
     Dosage: 1150 MILLIGRAM, ONCE DAILY (QD)
     Route: 061
  6. DEPAKENE [Concomitant]
     Active Substance: VALPROIC ACID
     Indication: Severe myoclonic epilepsy of infancy
     Dosage: 180 MILLIGRAM, ONCE DAILY (QD)
     Route: 061
  7. BELSOMRA [Concomitant]
     Active Substance: SUVOREXANT
     Indication: Insomnia
     Dosage: 2.5 MILLIGRAM, ONCE DAILY (QD)
     Route: 061
  8. ABILIFY [Concomitant]
     Active Substance: ARIPIPRAZOLE
     Indication: Irritability
     Dosage: 1.5 MILLILITER, ONCE DAILY (QD)
     Route: 061

REACTIONS (5)
  - Eating disorder [Recovering/Resolving]
  - Insomnia [Recovered/Resolved]
  - Anger [Unknown]
  - Prescribed underdose [Unknown]
  - Off label use [Unknown]
